FAERS Safety Report 7312458-9 (Version None)
Quarter: 2011Q1

REPORT INFORMATION
  Report Type: 
  Country: None (occurrence: None)
  Receive Date: 20110224
  Receipt Date: 20110215
  Transmission Date: 20110831
  Serious: Yes (Hospitalization, Other)
  Sender: FDA-Public Use
  Company Number: PHHY2011AU08919

PATIENT
  Sex: Female

DRUGS (4)
  1. EXFORGE HCT [Suspect]
  2. CRESTOR [Concomitant]
  3. ZYPREXA [Concomitant]
  4. ZANIDIP [Concomitant]

REACTIONS (3)
  - URINARY TRACT INFECTION [None]
  - BLOOD BILIRUBIN INCREASED [None]
  - CIRCULATORY COLLAPSE [None]
